FAERS Safety Report 22102207 (Version 1)
Quarter: 2023Q1

REPORT INFORMATION
  Report Type: Spontaneous
  Country: US (occurrence: None)
  Receive Date: 20230315
  Receipt Date: 20230315
  Transmission Date: 20230417
  Serious: Yes (Other)
  Sender: FDA-Public Use
  Company Number: None

PATIENT
  Age: 55 Year
  Sex: Female
  Weight: 66.47 kg

DRUGS (1)
  1. INFLECTRA [Suspect]
     Active Substance: INFLIXIMAB-DYYB
     Indication: Crohn^s disease
     Dosage: FREQUENCY : WEEKLY;?
     Route: 042
     Dates: start: 20230302, end: 20230302

REACTIONS (9)
  - Infusion related reaction [None]
  - Heart rate increased [None]
  - Headache [None]
  - Flushing [None]
  - Peripheral coldness [None]
  - Blood pressure decreased [None]
  - Pyrexia [None]
  - Hypertension [None]
  - Autoantibody positive [None]

NARRATIVE: CASE EVENT DATE: 20230302
